FAERS Safety Report 16136666 (Version 2)
Quarter: 2019Q3

REPORT INFORMATION
  Report Type: Spontaneous
  Country: AU (occurrence: AU)
  Receive Date: 20190401
  Receipt Date: 20190731
  Transmission Date: 20191004
  Serious: Yes (Other)
  Sender: FDA-Public Use
  Company Number: AU-AMGEN-AUSSP2019051327

PATIENT
  Age: 57 Year
  Sex: Male

DRUGS (2)
  1. AIMOVIG [Suspect]
     Active Substance: ERENUMAB-AOOE
     Dosage: 140 MILLIGRAM
     Route: 065
     Dates: start: 201810
  2. AIMOVIG [Suspect]
     Active Substance: ERENUMAB-AOOE
     Indication: PRODUCT USED FOR UNKNOWN INDICATION
     Dosage: UNK
     Route: 065

REACTIONS (18)
  - General physical condition abnormal [Unknown]
  - Localised infection [Unknown]
  - Musculoskeletal stiffness [Unknown]
  - Zika virus infection [Unknown]
  - Limb mass [Unknown]
  - Nausea [Unknown]
  - Arthritis [Unknown]
  - Haematuria [Unknown]
  - Arthralgia [Unknown]
  - Headache [Not Recovered/Not Resolved]
  - Contusion [Unknown]
  - Rash [Unknown]
  - Photosensitivity reaction [Unknown]
  - Migraine [Recovering/Resolving]
  - Pruritus [Unknown]
  - Vascular malformation [Unknown]
  - C-reactive protein increased [Unknown]
  - Blood urine present [Unknown]
